FAERS Safety Report 8259887-7 (Version None)
Quarter: 2012Q2

REPORT INFORMATION
  Report Type: 
  Country: None (occurrence: None)
  Receive Date: 20120404
  Receipt Date: 20120330
  Transmission Date: 20120825
  Serious: Yes (Hospitalization)
  Sender: FDA-Public Use
  Company Number: JP-GLAXOSMITHKLINE-B0788983A

PATIENT
  Age: 90 Year
  Sex: Female

DRUGS (13)
  1. VOLTAREN [Concomitant]
     Route: 062
  2. VALTREX [Suspect]
     Dosage: 1000MG PER DAY
     Route: 048
     Dates: start: 20120314, end: 20120316
  3. AMLODIPINE [Concomitant]
     Dosage: 5MG PER DAY
     Route: 048
  4. ALDACTONE [Concomitant]
     Dosage: 25MG PER DAY
     Route: 048
  5. FUROSEMIDE [Concomitant]
     Dosage: 1IUAX PER DAY
     Route: 048
  6. PURSENNID [Concomitant]
     Dosage: 24MG PER DAY
     Route: 048
  7. LIPITOR [Concomitant]
     Dosage: 10MG PER DAY
     Route: 048
  8. VALTREX [Suspect]
     Indication: HERPES ZOSTER OTICUS
     Dosage: 3000MG PER DAY
     Route: 048
     Dates: start: 20120309, end: 20120313
  9. TOCOPHEROL CONCENTRATE CAP [Concomitant]
     Route: 048
  10. ASPIRIN [Concomitant]
     Dosage: 100MG PER DAY
     Route: 048
  11. FERROUS CITRATE [Concomitant]
     Dosage: 100MG PER DAY
     Route: 048
  12. ACETAMINOPHEN [Concomitant]
     Route: 048
  13. ENALAPRIL MALEATE [Concomitant]
     Dosage: 10MG PER DAY
     Route: 048

REACTIONS (4)
  - CAROTID ARTERY OCCLUSION [None]
  - CEREBRAL ARTERY OCCLUSION [None]
  - OVERDOSE [None]
  - HALLUCINATION [None]
